FAERS Safety Report 16288982 (Version 3)
Quarter: 2022Q1

REPORT INFORMATION
  Report Type: Spontaneous
  Country: US (occurrence: None)
  Receive Date: 20190509
  Receipt Date: 20220125
  Transmission Date: 20220423
  Serious: Yes (Other)
  Sender: FDA-Public Use
  Company Number: 2019SE64901

PATIENT
  Age: 585 Month
  Sex: Male
  Weight: 104.3 kg

DRUGS (37)
  1. PRILOSEC [Suspect]
     Active Substance: OMEPRAZOLE MAGNESIUM
     Indication: Gastrooesophageal reflux disease
     Route: 048
     Dates: start: 20120909, end: 20191112
  2. PRILOSEC [Suspect]
     Active Substance: OMEPRAZOLE MAGNESIUM
     Indication: Gastrooesophageal reflux disease
     Dosage: GENERIC
     Route: 065
     Dates: start: 20110809
  3. PRILOSEC [Suspect]
     Active Substance: OMEPRAZOLE MAGNESIUM
     Indication: Gastrooesophageal reflux disease
     Dosage: GENERIC
     Route: 065
     Dates: start: 20120909, end: 20191112
  4. PRILOSEC OTC [Suspect]
     Active Substance: OMEPRAZOLE MAGNESIUM
     Indication: Gastrooesophageal reflux disease
     Route: 048
     Dates: start: 201201, end: 201912
  5. GABAPENTIN [Concomitant]
     Active Substance: GABAPENTIN
     Indication: Pain
     Dates: start: 20100714
  6. GABAPENTIN [Concomitant]
     Active Substance: GABAPENTIN
     Indication: Pain
     Dates: start: 20120928
  7. GABAPENTIN [Concomitant]
     Active Substance: GABAPENTIN
     Indication: Pain
     Dates: start: 20130104
  8. GABAPENTIN [Concomitant]
     Active Substance: GABAPENTIN
     Indication: Pain
     Dates: start: 20130505
  9. HYDROCHLOROTHIAZIDE [Concomitant]
     Active Substance: HYDROCHLOROTHIAZIDE
     Indication: Hypertension
     Dates: start: 20100714, end: 20100907
  10. PROAIR HFA [Concomitant]
     Active Substance: ALBUTEROL SULFATE
     Indication: Respiration abnormal
     Dates: start: 20120909
  11. OXYCODONE [Concomitant]
     Active Substance: OXYCODONE
     Indication: Pain
     Dates: start: 20101222
  12. OXYCODONE [Concomitant]
     Active Substance: OXYCODONE
     Indication: Pain
     Dates: start: 20160425
  13. LYRICA [Concomitant]
     Active Substance: PREGABALIN
     Indication: Pain
     Dates: start: 2013, end: 2017
  14. LYRICA [Concomitant]
     Active Substance: PREGABALIN
     Indication: Pain
     Dates: start: 20160425
  15. LOSARTAN [Concomitant]
     Active Substance: LOSARTAN
     Indication: Blood pressure measurement
     Dates: start: 2012, end: 2017
  16. WELLBUTRIN [Concomitant]
     Active Substance: BUPROPION HYDROCHLORIDE
  17. FOLIC ACID [Concomitant]
     Active Substance: FOLIC ACID
  18. NICOTINE [Concomitant]
     Active Substance: NICOTINE
  19. OLANZAPINE [Concomitant]
     Active Substance: OLANZAPINE
  20. CLONIDINE [Concomitant]
     Active Substance: CLONIDINE
  21. FLOVENT HFA [Concomitant]
     Active Substance: FLUTICASONE PROPIONATE
  22. CHLORDIAZEPOXIDE HYDROCHLORIDE [Concomitant]
     Active Substance: CHLORDIAZEPOXIDE HYDROCHLORIDE
  23. SOMA [Concomitant]
     Active Substance: CARISOPRODOL
  24. ADDRELL [Concomitant]
  25. DICLOFENAC [Concomitant]
     Active Substance: DICLOFENAC
  26. ECONAZOLE [Concomitant]
     Active Substance: ECONAZOLE
  27. BENZTROPINE [Concomitant]
     Active Substance: BENZTROPINE
  28. CHLORDIAZEPOXIDE [Concomitant]
     Active Substance: CHLORDIAZEPOXIDE
  29. CHLORAZEPAM [Concomitant]
     Active Substance: CHLORAZEPAM
  30. FLUOXETINE [Concomitant]
     Active Substance: FLUOXETINE HYDROCHLORIDE
  31. METHYLPREDNISOLONE [Concomitant]
     Active Substance: METHYLPREDNISOLONE
  32. LIDODERM [Concomitant]
     Active Substance: LIDOCAINE
  33. ORPHENADRINE [Concomitant]
     Active Substance: ORPHENADRINE
  34. MIRTAZAPINE [Concomitant]
     Active Substance: MIRTAZAPINE
  35. PRAZOSIN [Concomitant]
     Active Substance: PRAZOSIN
  36. DULOXETINE [Concomitant]
     Active Substance: DULOXETINE
  37. PHENAZOPYRIDINE [Concomitant]
     Active Substance: PHENAZOPYRIDINE

REACTIONS (1)
  - Acute kidney injury [Not Recovered/Not Resolved]

NARRATIVE: CASE EVENT DATE: 20131101
